FAERS Safety Report 8992812 (Version 2)
Quarter: 2013Q1

REPORT INFORMATION
  Report Type: Report from Study
  Country: US (occurrence: US)
  Receive Date: 20130102
  Receipt Date: 20130124
  Transmission Date: 20140127
  Serious: Yes (Hospitalization)
  Sender: FDA-Public Use
  Company Number: US-009507513-2012SP024385

PATIENT
  Age: 13 Year
  Sex: Male
  Weight: 42.18 kg

DRUGS (4)
  1. ASENAPINE MALEATE-BIPOLAR DISORDER [Suspect]
     Indication: BIPOLAR DISORDER
     Dosage: 2.5 MG, BID
     Route: 048
     Dates: start: 20111014, end: 20120416
  2. ASENAPINE MALEATE-BIPOLAR DISORDER [Suspect]
     Dosage: 5 MG, QD
     Route: 048
     Dates: start: 20120419
  3. ASENAPINE MALEATE-BIPOLAR DISORDER [Suspect]
     Dosage: 0 MG, UNKNOWN
     Route: 065
  4. SAPHRIS [Concomitant]
     Dosage: 5 MG, QD
     Route: 048
     Dates: start: 20120419

REACTIONS (3)
  - Accidental overdose [Unknown]
  - Somnolence [Unknown]
  - Loss of consciousness [Unknown]
